FAERS Safety Report 5076687-X (Version None)
Quarter: 2006Q3

REPORT INFORMATION
  Report Type: 
  Country: None (occurrence: None)
  Receive Date: 20060810
  Receipt Date: 20060528
  Transmission Date: 20061208
  Serious: Yes (Death, Life-Threatening, Hospitalization)
  Sender: FDA-Public Use
  Company Number: MX-ROCHE-449565

PATIENT
  Age: 92 Year
  Sex: Male
  Weight: 61 kg

DRUGS (7)
  1. RO 50-3821 [Suspect]
     Route: 058
     Dates: start: 20060123, end: 20060612
  2. RO 50-3821 [Suspect]
     Route: 058
  3. BI-EUGLUCON M [Concomitant]
     Dates: start: 20040623, end: 20060524
  4. ASPIRIN [Concomitant]
     Dates: start: 20041026, end: 20060524
  5. FLUTAMIDE [Concomitant]
     Dates: start: 19961018, end: 20060524
  6. ACETAMINOPHEN [Concomitant]
     Dates: start: 20060127, end: 20060524
  7. CALCIUM CARBONATE [Concomitant]
     Dates: start: 20060127, end: 20060524

REACTIONS (8)
  - BRONCHOSPASM [None]
  - DEATH [None]
  - DEHYDRATION [None]
  - DELIRIUM [None]
  - MUSCULAR WEAKNESS [None]
  - PNEUMONIA [None]
  - PROSTRATION [None]
  - RESPIRATORY ARREST [None]
